FAERS Safety Report 7987893-6 (Version None)
Quarter: 2011Q4

REPORT INFORMATION
  Report Type: 
  Country: None (occurrence: None)
  Receive Date: 20111216
  Receipt Date: 20101111
  Transmission Date: 20120403
  Serious: No
  Sender: FDA-Public Use
  Company Number: US-BRISTOL-MYERS SQUIBB COMPANY-15383649

PATIENT
  Age: 52 Year
  Sex: Female
  Weight: 89 kg

DRUGS (3)
  1. AMBIEN [Suspect]
     Route: 048
  2. PRISTIQ [Suspect]
     Indication: DEPRESSIVE SYMPTOM
     Dosage: ONE WEEK AFTER DISCONT, THEN RESTARTED AND FINALLY DISCONTINUED.
     Dates: start: 20100921, end: 20101025
  3. ABILIFY [Suspect]

REACTIONS (2)
  - BLEPHAROSPASM [None]
  - VISION BLURRED [None]
